FAERS Safety Report 7905729-6 (Version None)
Quarter: 2011Q4

REPORT INFORMATION
  Report Type: 
  Country: None (occurrence: None)
  Receive Date: 20111108
  Receipt Date: 20111024
  Transmission Date: 20120403
  Serious: Yes (Other)
  Sender: FDA-Public Use
  Company Number: 2011MA015728

PATIENT
  Age: 42 Year
  Sex: Male

DRUGS (1)
  1. PAREGORIC LIQUID USP (ALPHARMA) (PAREGORIC) [Suspect]
     Indication: POST LAMINECTOMY SYNDROME
     Dosage: INTH
     Route: 037

REACTIONS (8)
  - WEIGHT DECREASED [None]
  - HOT FLUSH [None]
  - NAUSEA [None]
  - FATIGUE [None]
  - TWIDDLER'S SYNDROME [None]
  - FEELING JITTERY [None]
  - DRUG WITHDRAWAL SYNDROME [None]
  - PAIN [None]
